FAERS Safety Report 23782745 (Version 3)
Quarter: 2025Q1

REPORT INFORMATION
  Report Type: Spontaneous
  Country: CA (occurrence: CA)
  Receive Date: 20240425
  Receipt Date: 20250303
  Transmission Date: 20250409
  Serious: Yes (Other)
  Sender: SANDOZ
  Company Number: CA-SANDOZ-SDZ2024CA042613

PATIENT
  Age: 42 Year
  Sex: Female

DRUGS (9)
  1. CLARITHROMYCIN [Suspect]
     Active Substance: CLARITHROMYCIN
     Indication: Product used for unknown indication
     Route: 065
  2. MEPOLIZUMAB [Suspect]
     Active Substance: MEPOLIZUMAB
     Dosage: 100 MG, Q4W (1 EVERY 4 WEEKS) (PRE-FILLED PEN)
     Route: 058
  3. MEPOLIZUMAB [Suspect]
     Active Substance: MEPOLIZUMAB
     Indication: Asthma
     Dosage: 100 MG, Q4W,  1 EVERY 4 WEEKS
     Route: 058
  4. MEPOLIZUMAB [Suspect]
     Active Substance: MEPOLIZUMAB
     Indication: Asthma
     Dosage: 100 MG, Q4W, 1 EVERY 4 WEEKS (PRE-FILLED SYRINGE)
     Route: 058
  5. MEPOLIZUMAB [Suspect]
     Active Substance: MEPOLIZUMAB
     Dosage: 100 MG, Q4W, 1 EVERY 4 WEEKS (PRE-FILLED SYRINGE)
     Route: 058
  6. MEPOLIZUMAB [Suspect]
     Active Substance: MEPOLIZUMAB
     Dosage: 100 MG, Q4W,1 EVERY 4 WEEKS (PRE-FILLED PEN)
     Route: 058
  7. BUDESONIDE\FORMOTEROL FUMARATE [Concomitant]
     Active Substance: BUDESONIDE\FORMOTEROL FUMARATE
     Indication: Product used for unknown indication
     Dosage: 2 DF, Q12H
     Route: 065
  8. PREDNISONE [Concomitant]
     Active Substance: PREDNISONE
     Indication: Product used for unknown indication
     Route: 065
  9. VENTOLIN [Concomitant]
     Active Substance: ALBUTEROL SULFATE
     Indication: Product used for unknown indication
     Route: 065

REACTIONS (7)
  - Fungal infection [Recovered/Resolved]
  - Lower respiratory tract infection [Recovered/Resolved]
  - Sinusitis [Recovered/Resolved]
  - Swelling face [Recovered/Resolved]
  - Headache [Recovered/Resolved]
  - Inappropriate schedule of product administration [Recovered/Resolved]
  - Product dose omission issue [Recovered/Resolved]
